FAERS Safety Report 4846256-2 (Version None)
Quarter: 2005Q4

REPORT INFORMATION
  Report Type: 
  Country: None (occurrence: None)
  Receive Date: 20051130
  Receipt Date: 20051116
  Transmission Date: 20060501
  Serious: Yes (Hospitalization)
  Sender: FDA-Public Use
  Company Number: 2005P1000580

PATIENT
  Age: 55 Year
  Sex: Female

DRUGS (8)
  1. RETEVASE [Suspect]
     Indication: ACUTE MYOCARDIAL INFARCTION
     Dosage: IV
     Route: 042
     Dates: start: 20050319, end: 20050319
  2. ABCIXIMAB [Suspect]
     Indication: ACUTE MYOCARDIAL INFARCTION
     Dosage: IV
     Route: 042
     Dates: start: 20050319
  3. ASPIRIN [Concomitant]
  4. CLOPIDOGREL BISULFATE [Concomitant]
  5. LISINOPRIL [Concomitant]
  6. ROSUVASTATIN [Concomitant]
  7. METOPROLOL SUCCINATE [Concomitant]
  8. THYROID TAB [Concomitant]

REACTIONS (1)
  - CHEST PAIN [None]
